FAERS Safety Report 20920239 (Version 1)
Quarter: 2022Q2

REPORT INFORMATION
  Report Type: Spontaneous
  Country: US (occurrence: US)
  Receive Date: 20220606
  Receipt Date: 20220606
  Transmission Date: 20220721
  Serious: No
  Sender: FDA-Public Use
  Company Number: US-PFIZER INC-202200794372

PATIENT
  Age: 77 Year
  Sex: Male
  Weight: 58.97 kg

DRUGS (1)
  1. PAXLOVID [Suspect]
     Active Substance: NIRMATRELVIR\RITONAVIR
     Indication: COVID-19 treatment
     Dosage: 6 PILLS ONE SET IN THE MORNING AND ONE SET IN THE EVENING
     Dates: start: 20220525, end: 20220530

REACTIONS (1)
  - Diarrhoea [Unknown]
